FAERS Safety Report 8223838-1 (Version None)
Quarter: 2012Q1

REPORT INFORMATION
  Report Type: 
  Country: None (occurrence: None)
  Receive Date: 20120321
  Receipt Date: 20120313
  Transmission Date: 20120608
  Serious: Yes (Hospitalization)
  Sender: FDA-Public Use
  Company Number: GB-SANOFI-AVENTIS-2012SA017138

PATIENT
  Age: 25 Year
  Sex: Female
  Weight: 109 kg

DRUGS (1)
  1. LANTUS [Suspect]
     Indication: INSULIN-REQUIRING TYPE 2 DIABETES MELLITUS
     Dosage: AT NIGHTDOSE AND DAILY DOSE-60
     Route: 065
     Dates: start: 20120131, end: 20120216

REACTIONS (3)
  - HYPERGLYCAEMIA [None]
  - MIGRAINE [None]
  - HEADACHE [None]
